FAERS Safety Report 6221476-3 (Version None)
Quarter: 2009Q2

REPORT INFORMATION
  Report Type: 
  Country: None (occurrence: None)
  Receive Date: 20090608
  Receipt Date: 20090522
  Transmission Date: 20091009
  Serious: Yes (Death)
  Sender: FDA-Public Use
  Company Number: F03200900046

PATIENT
  Age: 53 Year

DRUGS (12)
  1. OFORTA  - (FLUDARABINE PHOSPHATE) [Suspect]
     Indication: ACUTE LYMPHOCYTIC LEUKAEMIA
     Dosage: 30 MG/M2 FROM DAY SIX TO DAY THREE ORAL
     Route: 048
  2. OFORTA  - (FLUDARABINE PHOSPHATE) [Suspect]
     Indication: STEM CELL TRANSPLANT
     Dosage: 30 MG/M2 FROM DAY SIX TO DAY THREE ORAL
     Route: 048
  3. (ALEMTUZUMAB) [Suspect]
     Indication: ACUTE LYMPHOCYTIC LEUKAEMIA
     Dosage: 15 MG/M2 ON DAY 2
  4. (ALEMTUZUMAB) [Suspect]
     Indication: STEM CELL TRANSPLANT
     Dosage: 15 MG/M2 ON DAY 2
  5. THIOTEPA [Suspect]
     Indication: ACUTE LYMPHOCYTIC LEUKAEMIA
     Dosage: 10 MG/M2 ON DAY 7
  6. THIOTEPA [Suspect]
     Indication: STEM CELL TRANSPLANT
     Dosage: 10 MG/M2 ON DAY 7
  7. CYCLOPHOSPHAMIDE [Suspect]
     Indication: ACUTE LYMPHOCYTIC LEUKAEMIA
     Dosage: 30 MG/M2 ON DAYS SIX AND FIVE
  8. CYCLOPHOSPHAMIDE [Suspect]
     Indication: STEM CELL TRANSPLANT
     Dosage: 30 MG/M2 ON DAYS SIX AND FIVE
  9. ACYCLOVIR [Concomitant]
  10. LIPOSOMAL AMPHOTERICIN-B(AMPHOTERICIN-B) [Concomitant]
  11. TRIMETHOPRIM + SULFAMETHOXAZOLE [Concomitant]
  12. ITRACONAZOLE [Concomitant]

REACTIONS (3)
  - COMPLICATIONS OF BONE MARROW TRANSPLANT [None]
  - EPSTEIN-BARR VIRUS ASSOCIATED LYMPHOPROLIFERATIVE DISORDER [None]
  - GRAFT VERSUS HOST DISEASE [None]
